FAERS Safety Report 16583351 (Version 1)
Quarter: 2019Q3

REPORT INFORMATION
  Report Type: Spontaneous
  Country: FR (occurrence: FR)
  Receive Date: 20190717
  Receipt Date: 20190717
  Transmission Date: 20191004
  Serious: Yes (Hospitalization)
  Sender: FDA-Public Use
  Company Number: FR-TEVA-2019-FR-1077229

PATIENT
  Age: 48 Year
  Sex: Male
  Weight: 89 kg

DRUGS (1)
  1. OFLOXACINE [Suspect]
     Active Substance: OFLOXACIN
     Indication: URINARY TRACT INFECTION
     Route: 048
     Dates: start: 201904

REACTIONS (1)
  - Artery dissection [Recovered/Resolved with Sequelae]

NARRATIVE: CASE EVENT DATE: 20190608
